FAERS Safety Report 7302694-X (Version None)
Quarter: 2011Q1

REPORT INFORMATION
  Report Type: 
  Country: None (occurrence: None)
  Receive Date: 20110218
  Receipt Date: 20110214
  Transmission Date: 20110831
  Serious: Yes (Death, Hospitalization, Other)
  Sender: FDA-Public Use
  Company Number: FR-PFIZER INC-2011032335

PATIENT
  Sex: Female
  Weight: 2.3 kg

DRUGS (2)
  1. LYRICA [Suspect]
     Indication: NEURALGIA
     Dosage: 150 MG, 2X/DAY
     Route: 064
  2. ASPIRIN [Concomitant]
     Indication: THROMBOSIS PROPHYLAXIS
     Dosage: UNK
     Route: 064

REACTIONS (5)
  - FOETAL GROWTH RESTRICTION [None]
  - GLOMERULONEPHROPATHY [None]
  - DRUG EXPOSURE DURING PREGNANCY [None]
  - RENAL FAILURE [None]
  - HEPATIC FAILURE [None]
